FAERS Safety Report 23640207 (Version 1)
Quarter: 2024Q1

REPORT INFORMATION
  Report Type: Spontaneous
  Country: US (occurrence: US)
  Receive Date: 20240317
  Receipt Date: 20240317
  Transmission Date: 20240410
  Serious: No
  Sender: FDA-Public Use
  Company Number: US-JNJFOC-20240323726

PATIENT
  Sex: Female

DRUGS (2)
  1. ELMIRON [Suspect]
     Active Substance: PENTOSAN POLYSULFATE SODIUM
     Indication: Cystitis interstitial
     Dosage: USING 5 YEARS AGO; 3 CAPSULES PER TREATMENT
     Route: 065
  2. LIDOCAINE [Concomitant]
     Active Substance: LIDOCAINE
     Indication: Cystitis interstitial
     Route: 065

REACTIONS (2)
  - Product dose omission issue [Unknown]
  - Wrong technique in product usage process [Unknown]
